FAERS Safety Report 10172502 (Version 2)
Quarter: 2015Q1

REPORT INFORMATION
  Report Type: Spontaneous
  Country: GB (occurrence: GB)
  Receive Date: 20140515
  Receipt Date: 20150209
  Transmission Date: 20150720
  Serious: Yes (Other)
  Sender: FDA-Public Use
  Company Number: GB-SA-2014SA057519

PATIENT
  Age: 24 Year
  Sex: Female
  Weight: 69.85 kg

DRUGS (5)
  1. ARAVA [Suspect]
     Active Substance: LEFLUNOMIDE
     Indication: ARTHRITIS
     Route: 065
     Dates: start: 20090210, end: 201005
  2. PRED FORTE [Concomitant]
     Active Substance: PREDNISOLONE ACETATE
     Indication: UVEITIS
     Dosage: FOETAL EXPOSURE: 39 WEEKS, 1 DROP BOTH EYES
  3. PREDNISOLONE. [Concomitant]
     Active Substance: PREDNISOLONE
     Indication: UVEITIS
     Route: 048
     Dates: end: 201405
  4. ENTONOX [Concomitant]
     Active Substance: NITROUS OXIDE\OXYGEN
     Indication: LABOUR PAIN
  5. ACICLOVIR [Concomitant]
     Active Substance: ACYCLOVIR
     Indication: HERPES SIMPLEX

REACTIONS (3)
  - Postpartum haemorrhage [Unknown]
  - Exposure during pregnancy [Unknown]
  - Uveitis [Unknown]

NARRATIVE: CASE EVENT DATE: 201403
